FAERS Safety Report 7488912-6 (Version None)
Quarter: 2011Q2

REPORT INFORMATION
  Report Type: 
  Country: None (occurrence: None)
  Receive Date: 20110518
  Receipt Date: 20110419
  Transmission Date: 20111010
  Serious: Yes (Hospitalization, Other)
  Sender: FDA-Public Use
  Company Number: US-BAYER-201039995NA

PATIENT
  Age: 35 Year
  Sex: Female
  Weight: 80.726 kg

DRUGS (6)
  1. MULTI-VITAMIN [Concomitant]
     Dosage: UNK UNK, QD
     Route: 048
  2. ZANTAC [Concomitant]
     Dosage: 150 MG, UNK
     Route: 048
  3. CIPRO [Concomitant]
     Dosage: 500 MG, BID
     Route: 048
     Dates: start: 20090125, end: 20090128
  4. DROSPIRENONE AND ETHINYL ESTRADIOL [Suspect]
     Indication: CONTRACEPTION
     Dosage: UNK
     Route: 048
     Dates: start: 20080901, end: 20090601
  5. IBUPROFEN [Concomitant]
     Indication: MIGRAINE
     Dosage: 800 MG, TID
     Route: 048
  6. GAS X [Concomitant]
     Route: 048

REACTIONS (4)
  - PAIN [None]
  - GALLBLADDER DISORDER [None]
  - CHOLECYSTITIS CHRONIC [None]
  - CHOLECYSTITIS ACUTE [None]
